FAERS Safety Report 14239138 (Version 3)
Quarter: 2018Q1

REPORT INFORMATION
  Report Type: Spontaneous
  Country: FR (occurrence: FR)
  Receive Date: 20171130
  Receipt Date: 20180124
  Transmission Date: 20180508
  Serious: Yes (Hospitalization, Disabling, Other)
  Sender: FDA-Public Use
  Company Number: FR-ROCHE-2027930

PATIENT
  Sex: Female

DRUGS (30)
  1. CLAREAL [Concomitant]
     Active Substance: DESOGESTREL
     Route: 065
  2. XATRAL [Concomitant]
     Active Substance: ALFUZOSIN
  3. LAROXYL [Concomitant]
     Active Substance: AMITRIPTYLINE HYDROCHLORIDE
     Dosage: 25 DROPS
     Route: 065
  4. IMIGRANE [Concomitant]
     Active Substance: SUMATRIPTAN SUCCINATE
  5. RIVOTRIL [Suspect]
     Active Substance: CLONAZEPAM
     Indication: FACIAL NEURALGIA
     Dosage: IN THE MORNING, MIDDAY AND EVENING SHE RECEIVED 7 DROPS OF CLONAZEPAM?MAXIMUM DOSE WAS ABOUT 30 DROP
     Route: 048
     Dates: start: 201502
  6. DEPAKIN CHRONO [Concomitant]
     Active Substance: VALPROIC ACID
     Dosage: DEPAKINE 500 CHRONO 0.5 TABLET
     Route: 065
  7. OXYCONTIN [Concomitant]
     Active Substance: OXYCODONE HYDROCHLORIDE
     Dosage: 0.5 OR 1 TABLET
     Route: 065
  8. CYMBALTA [Concomitant]
     Active Substance: DULOXETINE HYDROCHLORIDE
     Route: 065
  9. NEURONTIN [Concomitant]
     Active Substance: GABAPENTIN
     Route: 065
  10. ACUPAN [Concomitant]
     Active Substance: NEFOPAM HYDROCHLORIDE
  11. IZALGI [Concomitant]
     Active Substance: ACETAMINOPHEN\OPIUM
  12. SOLUPRED (FRANCE) [Concomitant]
     Active Substance: PREDNISOLONE
  13. CYMBALTA [Concomitant]
     Active Substance: DULOXETINE HYDROCHLORIDE
  14. TEGRETOL [Concomitant]
     Active Substance: CARBAMAZEPINE
  15. DEPAKINE [Concomitant]
     Active Substance: VALPROATE SODIUM
     Route: 065
  16. LIORESAL [Concomitant]
     Active Substance: BACLOFEN
  17. SPASFON (FRANCE) [Concomitant]
     Active Substance: PHLOROGLUCINOL\1,3,5-TRIMETHOXYBENZENE
  18. LAMICTAL [Concomitant]
     Active Substance: LAMOTRIGINE
  19. GABAPENTINE [Concomitant]
     Active Substance: GABAPENTIN
     Route: 065
  20. LEVOFLOXACINE [Concomitant]
     Active Substance: LEVOFLOXACIN
  21. TERCIAN [Concomitant]
     Active Substance: CYAMEMAZINE
  22. GABAPENTINE [Concomitant]
     Active Substance: GABAPENTIN
     Route: 065
  23. ACTISKENAN [Concomitant]
     Active Substance: MORPHINE SULFATE
     Dosage: 5MG AND UP TO 6 PER DAY
     Route: 065
  24. SPIFEN [Concomitant]
     Active Substance: IBUPROFEN
  25. OROKEN [Concomitant]
     Active Substance: CEFIXIME
  26. FLAGYL [Concomitant]
     Active Substance: METRONIDAZOLE\METRONIDAZOLE HYDROCHLORIDE
  27. OXYCONTIN [Concomitant]
     Active Substance: OXYCODONE HYDROCHLORIDE
     Dosage: 40MG 1 TABLET
     Route: 065
  28. IMIJECT [Concomitant]
     Active Substance: SUMATRIPTAN SUCCINATE
  29. BOTOX [Concomitant]
     Active Substance: ONABOTULINUMTOXINA
  30. TRAMADOL. [Concomitant]
     Active Substance: TRAMADOL

REACTIONS (15)
  - Intentional product use issue [Unknown]
  - Muscle spasms [Unknown]
  - Urinary incontinence [Unknown]
  - Urethral stenosis [Not Recovered/Not Resolved]
  - Renal colic [Unknown]
  - Pyelonephritis [Unknown]
  - Appendicitis [Unknown]
  - Post procedural oedema [Unknown]
  - Urinary retention [Not Recovered/Not Resolved]
  - Off label use [Unknown]
  - Neurogenic bladder [Not Recovered/Not Resolved]
  - Postoperative abscess [Unknown]
  - Arthralgia [Unknown]
  - Tremor [Unknown]
  - Urinary tract infection [Unknown]
